FAERS Safety Report 10143593 (Version 1)
Quarter: 2014Q2

REPORT INFORMATION
  Report Type: Spontaneous
  Country: IT (occurrence: IT)
  Receive Date: 20140430
  Receipt Date: 20140430
  Transmission Date: 20141212
  Serious: Yes (Hospitalization)
  Sender: FDA-Public Use
  Company Number: IT-JNJFOC-20140415921

PATIENT
  Age: 21 Year
  Sex: Female

DRUGS (1)
  1. SERENASE [Suspect]
     Indication: PRODUCT USED FOR UNKNOWN INDICATION
     Route: 048
     Dates: start: 20140219, end: 20140219

REACTIONS (6)
  - Overdose [Recovering/Resolving]
  - Hyperhidrosis [Recovering/Resolving]
  - Headache [Recovering/Resolving]
  - Salivary hypersecretion [Recovering/Resolving]
  - Trismus [Recovering/Resolving]
  - Musculoskeletal stiffness [Recovering/Resolving]
